FAERS Safety Report 24338789 (Version 1)
Quarter: 2024Q3

REPORT INFORMATION
  Report Type: Spontaneous
  Country: US (occurrence: None)
  Receive Date: 20240919
  Receipt Date: 20240919
  Transmission Date: 20241017
  Serious: Yes (Other)
  Sender: BANNER
  Company Number: US-PTA-005784

PATIENT
  Age: 63 Year
  Sex: Female

DRUGS (1)
  1. NAPROXEN [Suspect]
     Active Substance: NAPROXEN

REACTIONS (3)
  - Hallucination [Unknown]
  - Nightmare [Unknown]
  - Product container seal issue [Unknown]
